FAERS Safety Report 18191435 (Version 2)
Quarter: 2020Q3

REPORT INFORMATION
  Report Type: Report from Study
  Country: ES (occurrence: ES)
  Receive Date: 20200825
  Receipt Date: 20200915
  Transmission Date: 20201103
  Serious: Yes (Hospitalization)
  Sender: FDA-Public Use
  Company Number: ES-KARYOPHARM-2020KPT000914

PATIENT
  Age: 52 Year
  Sex: Male
  Weight: 64.2 kg

DRUGS (18)
  1. DECADRON [Concomitant]
     Active Substance: DEXAMETHASONE
     Indication: ANTIINFLAMMATORY THERAPY
     Dosage: 2 MG, QD
     Route: 048
     Dates: start: 20200729
  2. OMEPRAZOLE. [Concomitant]
     Active Substance: OMEPRAZOLE
     Indication: ABDOMINAL PAIN UPPER
     Dosage: 1 G
     Dates: start: 20170915
  3. FENTANYL. [Concomitant]
     Active Substance: FENTANYL
     Dosage: 12 UG
  4. FENTANYL. [Concomitant]
     Active Substance: FENTANYL
     Dosage: 100 MG
     Route: 048
     Dates: start: 20191212
  5. PLACEBO [Suspect]
     Active Substance: UNSPECIFIED INGREDIENT
     Indication: DEDIFFERENTIATED LIPOSARCOMA
     Dates: start: 20200715, end: 20200811
  6. METAMIZOLE [Concomitant]
     Active Substance: METAMIZOLE
     Dosage: 2 G, PRN
     Route: 042
     Dates: start: 20200708, end: 20200712
  7. PARACETAMOL [Concomitant]
     Active Substance: ACETAMINOPHEN
     Indication: ABDOMINAL PAIN
     Dosage: 1 G, QD
     Route: 048
     Dates: start: 20200709
  8. FENTANYL. [Concomitant]
     Active Substance: FENTANYL
     Indication: ANALGESIC THERAPY
     Dosage: 75 UG
  9. OLANZAPINE. [Concomitant]
     Active Substance: OLANZAPINE
     Indication: NAUSEA
     Dosage: 10 MG
     Dates: start: 20200805
  10. OMEPRAZOLE. [Concomitant]
     Active Substance: OMEPRAZOLE
     Dosage: 20 MG, QD
     Route: 048
     Dates: start: 20200708
  11. METOCLOPRAMIDE. [Concomitant]
     Active Substance: METOCLOPRAMIDE
     Indication: NAUSEA
     Dosage: 10 MG, PRN
     Route: 048
     Dates: start: 20200718
  12. METOCLOPRAMIDE. [Concomitant]
     Active Substance: METOCLOPRAMIDE
     Indication: VOMITING
  13. MOVICOL [Concomitant]
     Active Substance: POLYETHYLENE GLYCOL 3350\POTASSIUM CHLORIDE\SODIUM BICARBONATE\SODIUM CHLORIDE
     Indication: CONSTIPATION
     Dosage: 1 DF, PRN
     Route: 048
     Dates: start: 20200729
  14. BLINDED SELINEXOR [Suspect]
     Active Substance: SELINEXOR
     Indication: DEDIFFERENTIATED LIPOSARCOMA
     Dates: start: 20200715, end: 20200811
  15. METAMIZOLE [Concomitant]
     Active Substance: METAMIZOLE
     Indication: PAIN
     Dosage: 575 MG, PRN
     Route: 048
     Dates: start: 20170816
  16. FENTANYL. [Concomitant]
     Active Substance: FENTANYL
     Dosage: 12 UG, Q72H
     Route: 062
     Dates: start: 20200710, end: 20200712
  17. ONDANSETRON [Concomitant]
     Active Substance: ONDANSETRON
     Indication: NAUSEA
     Dosage: 8 MG, PRN
     Route: 048
     Dates: start: 20200719, end: 20200720
  18. FENTANYL. [Concomitant]
     Active Substance: FENTANYL
     Dosage: 72.5 UG, Q72H
     Route: 048
     Dates: start: 20200709

REACTIONS (2)
  - Nausea [Recovered/Resolved]
  - Vomiting [Recovered/Resolved]

NARRATIVE: CASE EVENT DATE: 20200811
